FAERS Safety Report 20476482 (Version 19)
Quarter: 2022Q4

REPORT INFORMATION
  Report Type: Other
  Country: CA (occurrence: None)
  Receive Date: 20220215
  Receipt Date: 20221219
  Transmission Date: 20230112
  Serious: Yes (Other)
  Sender: FDA-Public Use
  Company Number: CA-ROCHE-3023089

PATIENT
  Age: 42 Year
  Sex: Female

DRUGS (8)
  1. OCREVUS [Suspect]
     Active Substance: OCRELIZUMAB
     Indication: Relapsing-remitting multiple sclerosis
     Dosage: 300 MG AT DAY 0 AND 14, THEN 600 MG EVERY 6 MONTH
     Route: 042
     Dates: start: 20200921
  2. CORTISONE [Suspect]
     Active Substance: CORTISONE
     Indication: Product used for unknown indication
     Route: 065
  3. CANNABIS SATIVA SUBSP. INDICA TOP [Concomitant]
     Active Substance: CANNABIS SATIVA SUBSP. INDICA TOP
  4. ALVESCO [Concomitant]
     Active Substance: CICLESONIDE
  5. CONCERTA [Concomitant]
     Active Substance: METHYLPHENIDATE HYDROCHLORIDE
  6. SERTRALINE [Concomitant]
     Active Substance: SERTRALINE HYDROCHLORIDE
  7. AMOXICILLIN\CLAVULANATE POTASSIUM [Concomitant]
     Active Substance: AMOXICILLIN\CLAVULANATE POTASSIUM
     Dosage: 875 + 125 MG
     Dates: start: 20221011
  8. HERBALS [Concomitant]
     Active Substance: HERBALS

REACTIONS (26)
  - COVID-19 [Not Recovered/Not Resolved]
  - Gastric disorder [Unknown]
  - Intervertebral disc protrusion [Unknown]
  - Crying [Unknown]
  - Hepatic pain [Unknown]
  - Ocular icterus [Unknown]
  - Disturbance in attention [Unknown]
  - Ear pain [Not Recovered/Not Resolved]
  - Ear infection [Unknown]
  - Infusion related reaction [Recovered/Resolved]
  - Pyrexia [Not Recovered/Not Resolved]
  - Fatigue [Not Recovered/Not Resolved]
  - Headache [Not Recovered/Not Resolved]
  - Weight increased [Not Recovered/Not Resolved]
  - Skin plaque [Not Recovered/Not Resolved]
  - Tonsillitis [Recovered/Resolved]
  - Bronchitis [Recovered/Resolved]
  - Insomnia [Unknown]
  - Hernia pain [Unknown]
  - Pain in extremity [Unknown]
  - Back pain [Unknown]
  - Tremor [Recovered/Resolved]
  - Oropharyngeal pain [Not Recovered/Not Resolved]
  - Pneumonia [Unknown]
  - Urinary tract infection [Recovered/Resolved]
  - Pulmonary mass [Unknown]

NARRATIVE: CASE EVENT DATE: 20220203
